FAERS Safety Report 20733834 (Version 2)
Quarter: 2022Q4

REPORT INFORMATION
  Report Type: Spontaneous
  Country: US (occurrence: US)
  Receive Date: 20220421
  Receipt Date: 20221121
  Transmission Date: 20230112
  Serious: Yes (Hospitalization, Other)
  Sender: FDA-Public Use
  Company Number: US-BRISTOL-MYERS SQUIBB COMPANY-2022-020309

PATIENT
  Age: 77 Year
  Sex: Male

DRUGS (1)
  1. POMALYST [Suspect]
     Active Substance: POMALIDOMIDE
     Indication: Plasma cell myeloma
     Dosage: FREQ: DAILY
     Route: 048
     Dates: start: 202111

REACTIONS (5)
  - Haemorrhage [Unknown]
  - Deep vein thrombosis [Unknown]
  - Oesophageal ulcer [Unknown]
  - Faeces discoloured [Unknown]
  - Pyrexia [Unknown]

NARRATIVE: CASE EVENT DATE: 20220327
